FAERS Safety Report 4464907-1 (Version None)
Quarter: 2004Q4

REPORT INFORMATION
  Report Type: 
  Country: None (occurrence: None)
  Receive Date: 20041004
  Receipt Date: 20040206
  Transmission Date: 20050328
  Serious: Yes (Life-Threatening, Other)
  Sender: FDA-Public Use
  Company Number: 358676

PATIENT
  Age: 81 Year
  Sex: Female

DRUGS (8)
  1. COREG [Suspect]
     Dosage: 1.5625MG PER DAY
     Route: 048
     Dates: start: 20031201
  2. DIGOXIN [Concomitant]
  3. ALTACE [Concomitant]
  4. LASIX [Concomitant]
  5. SPIRONOLACTONE [Concomitant]
  6. INSULIN [Concomitant]
  7. SYNTHROID [Concomitant]
  8. THIAMINE HCL [Concomitant]

REACTIONS (2)
  - BRAIN NATRIURETIC PEPTIDE INCREASED [None]
  - CARDIAC FAILURE [None]
